FAERS Safety Report 9647922 (Version 1)
Quarter: 2013Q4

REPORT INFORMATION
  Report Type: Spontaneous
  Country: US (occurrence: US)
  Receive Date: 20131028
  Receipt Date: 20131028
  Transmission Date: 20140711
  Serious: No
  Sender: FDA-Public Use
  Company Number: US-PFIZER INC-2013305155

PATIENT
  Age: 58 Year
  Sex: Female
  Weight: 81.63 kg

DRUGS (4)
  1. CELEBREX [Suspect]
     Indication: ARTHRITIS
     Dosage: 200 MG, 1X/DAY
     Route: 048
     Dates: start: 201310, end: 201310
  2. CELEBREX [Suspect]
     Indication: INFLAMMATION
  3. PROZAC [Concomitant]
     Dosage: 20 MG, UNK
  4. SYNTHROID [Concomitant]
     Dosage: 75 UG, UNK

REACTIONS (1)
  - Pruritus [Recovered/Resolved]
